FAERS Safety Report 19079558 (Version 1)
Quarter: 2021Q1

REPORT INFORMATION
  Report Type: Spontaneous
  Country: GB (occurrence: GB)
  Receive Date: 20210331
  Receipt Date: 20210331
  Transmission Date: 20210420
  Serious: Yes (Disabling)
  Sender: FDA-Public Use
  Company Number: GB-MYLANLABS-2021M1017251

PATIENT
  Age: 22 Year
  Sex: Female

DRUGS (1)
  1. CITALOPRAM [Suspect]
     Active Substance: CITALOPRAM HYDROBROMIDE
     Indication: ILL-DEFINED DISORDER
     Dosage: 1 DOSAGE FORM, QD (20 MILLIGRAM,QD)
     Route: 048

REACTIONS (5)
  - Movement disorder [Unknown]
  - Dizziness [Unknown]
  - Product dispensing error [Unknown]
  - Malaise [Unknown]
  - Decreased appetite [Unknown]
